FAERS Safety Report 8941105 (Version 1)
Quarter: 2012Q4

REPORT INFORMATION
  Report Type: Report from Study
  Country: US (occurrence: US)
  Receive Date: 20121203
  Receipt Date: 20121203
  Transmission Date: 20130627
  Serious: Yes (Death)
  Sender: FDA-Public Use
  Company Number: US-ROCHE-1081546

PATIENT
  Age: 54 None
  Sex: Male
  Weight: 96.7 kg

DRUGS (3)
  1. VEMURAFENIB [Suspect]
     Indication: METASTATIC MALIGNANT MELANOMA
     Route: 048
     Dates: start: 20120601, end: 20120703
  2. VEMURAFENIB [Suspect]
     Route: 048
     Dates: start: 20120711
  3. NYSTATIN [Concomitant]
     Dosage: anti fungal
     Route: 048
     Dates: start: 201208

REACTIONS (18)
  - Death [Fatal]
  - Rash [Recovered/Resolved]
  - Arthralgia [Unknown]
  - Fatigue [Unknown]
  - Myalgia [Unknown]
  - Neck mass [Not Recovered/Not Resolved]
  - Abdominal discomfort [Not Recovered/Not Resolved]
  - Malaise [Not Recovered/Not Resolved]
  - Pyrexia [Recovered/Resolved]
  - Rash [Unknown]
  - Skin papilloma [Unknown]
  - Nausea [Unknown]
  - Decreased appetite [Not Recovered/Not Resolved]
  - Pain in extremity [Not Recovered/Not Resolved]
  - Alopecia [Not Recovered/Not Resolved]
  - Abdominal pain [Unknown]
  - Weight decreased [Unknown]
  - Drug ineffective [Unknown]
